FAERS Safety Report 9865328 (Version 1)
Quarter: 2014Q1

REPORT INFORMATION
  Report Type: Spontaneous
  Country: US (occurrence: US)
  Receive Date: 20140203
  Receipt Date: 20140203
  Transmission Date: 20141002
  Serious: No
  Sender: FDA-Public Use
  Company Number: US-ALLERGAN-1301249US

PATIENT
  Age: 23 Year
  Sex: Female

DRUGS (7)
  1. RESTASIS [Suspect]
     Indication: DRY EYE
     Dosage: UNK, SINGLE
     Route: 047
     Dates: start: 201207, end: 201207
  2. PRESTIQ [Concomitant]
     Indication: ANXIETY
     Dosage: 50 MG, QD
     Route: 048
  3. PRESTIQ [Concomitant]
     Indication: DEPRESSION
  4. AMITRIPTYLINE [Concomitant]
     Indication: HEADACHE
     Dosage: 12 MG, QHS
     Route: 048
  5. AMITRIPTYLINE [Concomitant]
     Indication: TEMPOROMANDIBULAR JOINT SYNDROME
  6. BUSPAR [Concomitant]
     Indication: ANXIETY
     Dosage: UNK UNK, BID
     Route: 048
  7. FRESH COAT EYE DROPS [Concomitant]
     Indication: DRY EYE
     Dosage: UNK, QID
     Route: 047

REACTIONS (1)
  - Eye irritation [Unknown]
